FAERS Safety Report 5762504-9 (Version None)
Quarter: 2008Q2

REPORT INFORMATION
  Report Type: 
  Country: None (occurrence: None)
  Receive Date: 20080609
  Receipt Date: 20080603
  Transmission Date: 20081010
  Serious: Yes (Hospitalization)
  Sender: FDA-Public Use
  Company Number: A0730909A

PATIENT
  Age: 59 Year
  Sex: Male

DRUGS (2)
  1. ADVAIR DISKUS 100/50 [Suspect]
     Indication: LUNG DISORDER
     Dosage: 1PUFF TWICE PER DAY
     Route: 055
     Dates: start: 20050101
  2. UNKNOWN [Concomitant]

REACTIONS (4)
  - CHEST PAIN [None]
  - DYSPHONIA [None]
  - MYOCARDIAL INFARCTION [None]
  - PNEUMONIA [None]
